FAERS Safety Report 10596561 (Version 3)
Quarter: 2015Q2

REPORT INFORMATION
  Report Type: Report from Study
  Country: US (occurrence: US)
  Receive Date: 20141120
  Receipt Date: 20150519
  Transmission Date: 20150821
  Serious: Yes (Other)
  Sender: FDA-Public Use
  Company Number: US-SA-2014SA003007

PATIENT
  Age: 48 Year
  Sex: Female

DRUGS (1)
  1. AUBAGIO [Suspect]
     Active Substance: TERIFLUNOMIDE
     Indication: MULTIPLE SCLEROSIS
     Route: 048
     Dates: start: 20130410

REACTIONS (19)
  - Amenorrhoea [Unknown]
  - Memory impairment [Unknown]
  - Fatigue [Recovering/Resolving]
  - Blood urine present [Unknown]
  - Peripheral swelling [Recovering/Resolving]
  - Pain [Unknown]
  - Pain in extremity [Unknown]
  - Oedema peripheral [Unknown]
  - Aphasia [Unknown]
  - Therapeutic response unexpected [Unknown]
  - Benign neoplasm of bladder [Unknown]
  - Joint swelling [Recovering/Resolving]
  - Somnolence [Not Recovered/Not Resolved]
  - Multiple sclerosis relapse [Recovering/Resolving]
  - Paraesthesia [Not Recovered/Not Resolved]
  - Discomfort [Recovering/Resolving]
  - Pain [Recovering/Resolving]
  - Dysuria [Unknown]
  - Skin discolouration [Unknown]

NARRATIVE: CASE EVENT DATE: 201503
